FAERS Safety Report 6222626-5 (Version None)
Quarter: 2009Q2

REPORT INFORMATION
  Report Type: 
  Country: None (occurrence: None)
  Receive Date: 20090611
  Receipt Date: 20090518
  Transmission Date: 20091009
  Serious: Yes (Hospitalization)
  Sender: FDA-Public Use
  Company Number: JP-NOVOPROD-287359

PATIENT
  Sex: Male
  Weight: 68 kg

DRUGS (12)
  1. LEVEMIR [Suspect]
     Indication: TYPE 2 DIABETES MELLITUS
     Dosage: 9 IU, QD
     Route: 058
     Dates: start: 20090109
  2. NOVORAPID CHU FLEXPEN [Suspect]
     Indication: TYPE 2 DIABETES MELLITUS
     Dosage: 6 IU, QD
     Route: 058
     Dates: start: 20080606
  3. ZYLORIC                            /00003301/ [Concomitant]
     Indication: HYPERURICAEMIA
     Dosage: 75 MG, QD
     Route: 048
     Dates: start: 20080606, end: 20090310
  4. ASPIRIN [Concomitant]
     Dosage: 100 MG, QD
     Route: 048
     Dates: start: 20080606
  5. LASIX [Concomitant]
     Indication: OEDEMA
     Dosage: 40 MG, QD
     Route: 048
     Dates: start: 20080606
  6. MICARDIS [Concomitant]
     Indication: HYPERTENSION
     Dosage: 2 TABLETS
     Route: 048
  7. CARDENALIN [Concomitant]
     Indication: HYPERTENSION
     Dosage: 3 TABLETS
     Route: 048
  8. EURODIN                            /00425901/ [Concomitant]
     Indication: INSOMNIA
     Dosage: 1 TABLET
     Route: 048
  9. ITOROL [Concomitant]
     Indication: ANGINA PECTORIS
     Dosage: 2 TABLETS
     Route: 048
  10. NORVASC [Concomitant]
     Indication: HYPERTENSION
     Dosage: 2 TABLETS
     Route: 048
  11. ARGAMATE [Concomitant]
     Indication: HYPERKALAEMIA
  12. SODIUM BICARBONATE [Concomitant]
     Indication: ACIDOSIS
     Dosage: 9 G, QD
     Route: 048

REACTIONS (2)
  - DEHYDRATION [None]
  - GASTROENTERITIS [None]
